FAERS Safety Report 16025424 (Version 2)
Quarter: 2019Q1

REPORT INFORMATION
  Report Type: Report from Study
  Country: AU (occurrence: AU)
  Receive Date: 20190301
  Receipt Date: 20190315
  Transmission Date: 20190418
  Serious: Yes (Hospitalization)
  Sender: FDA-Public Use
  Company Number: AU-AMGEN-AUSCT2019033021

PATIENT
  Sex: Female

DRUGS (2)
  1. AIMOVIG [Suspect]
     Active Substance: ERENUMAB-AOOE
     Indication: MIGRAINE
     Dosage: 140 MILLIGRAM, Q4WK
     Route: 058
     Dates: start: 20190110
  2. AIMOVIG [Suspect]
     Active Substance: ERENUMAB-AOOE
     Indication: MIGRAINE
     Dosage: 140 MILLIGRAM
     Route: 065
     Dates: start: 20190208

REACTIONS (19)
  - Arthralgia [Unknown]
  - Nausea [Unknown]
  - Loss of consciousness [Unknown]
  - Organ failure [Unknown]
  - Dyspnoea [Unknown]
  - Abdominal pain upper [Unknown]
  - Hypersomnia [Unknown]
  - Myalgia [Unknown]
  - Fatigue [Unknown]
  - Abdominal discomfort [Unknown]
  - Asthenia [Unknown]
  - Vision blurred [Unknown]
  - Chest pain [Unknown]
  - Oedema [Unknown]
  - Influenza like illness [Unknown]
  - Dry mouth [Unknown]
  - Swelling [Unknown]
  - Fall [Unknown]
  - Cognitive disorder [Unknown]
